FAERS Safety Report 15602298 (Version 1)
Quarter: 2018Q4

REPORT INFORMATION
  Report Type: Spontaneous
  Country: US (occurrence: US)
  Receive Date: 20181109
  Receipt Date: 20181109
  Transmission Date: 20190205
  Serious: Yes (Other)
  Sender: FDA-Public Use
  Company Number: US-PFIZER INC-2018458288

PATIENT
  Age: 19 Year
  Sex: Male

DRUGS (2)
  1. FENTANYL CITRATE. [Suspect]
     Active Substance: FENTANYL CITRATE
     Dosage: UNK
     Route: 042
  2. COCAINE [Concomitant]
     Active Substance: COCAINE
     Dosage: UNK
     Route: 042

REACTIONS (2)
  - Toxic leukoencephalopathy [Unknown]
  - Drug abuse [Unknown]
